FAERS Safety Report 5992014-5 (Version None)
Quarter: 2008Q4

REPORT INFORMATION
  Report Type: 
  Country: None (occurrence: None)
  Receive Date: 20081211
  Receipt Date: 20081204
  Transmission Date: 20090506
  Serious: Yes (Other)
  Sender: FDA-Public Use
  Company Number: DE-ROXANE LABORATORIES, INC.-2008-RO-00353RO

PATIENT
  Age: 60 Year
  Sex: Female

DRUGS (3)
  1. CITALOPRAM HYDROBROMIDE [Suspect]
     Indication: DEPRESSION
  2. CITALOPRAM HYDROBROMIDE [Suspect]
  3. HEALING EARTH [Suspect]

REACTIONS (4)
  - ABDOMINAL PAIN UPPER [None]
  - DRUG INTERACTION [None]
  - GASTROOESOPHAGEAL REFLUX DISEASE [None]
  - INSOMNIA [None]
